FAERS Safety Report 25615384 (Version 1)
Quarter: 2025Q3

REPORT INFORMATION
  Report Type: Spontaneous
  Country: EU (occurrence: EU)
  Receive Date: 20250729
  Receipt Date: 20250729
  Transmission Date: 20251021
  Serious: Yes (Other)
  Sender: ALEXION PHARMACEUTICALS
  Company Number: None

PATIENT
  Age: 50 Year
  Sex: Male

DRUGS (6)
  1. TICAGRELOR [Suspect]
     Active Substance: TICAGRELOR
     Dosage: 360 MILLIGRAM, QD
     Dates: start: 20250604, end: 20250604
  2. BISOPROLOL FUMARATE\PERINDOPRIL ARGININE [Suspect]
     Active Substance: BISOPROLOL FUMARATE\PERINDOPRIL ARGININE
     Dosage: 1 DF =  5 MG BISOPROLOLFUMARATA (?TO ODGOVARA 4,24 MG BISOPROLOLA) I 5 MG PERINDOPRILARGININA (?TO ODGOVARA 3,395 MG PERINDOPRILA)
     Dates: start: 20250604, end: 20250604
  3. EUTHYROX [Suspect]
     Active Substance: LEVOTHYROXINE SODIUM
     Dates: start: 20250604, end: 20250604
  4. PANTOPRAZOLE SODIUM [Suspect]
     Active Substance: PANTOPRAZOLE SODIUM
     Dates: start: 20250604, end: 20250604
  5. ANDOL [Suspect]
     Active Substance: ASPIRIN
     Dosage: 1000 MILLIGRAM, QD
     Dates: start: 20250604, end: 20250604
  6. ACETAMINOPHEN [Suspect]
     Active Substance: ACETAMINOPHEN
     Dates: start: 20250604, end: 20250604

REACTIONS (3)
  - Suicide attempt [Unknown]
  - Hypotension [Unknown]
  - Intentional overdose [Unknown]

NARRATIVE: CASE EVENT DATE: 20250604
